FAERS Safety Report 6697484-5 (Version None)
Quarter: 2010Q2

REPORT INFORMATION
  Report Type: 
  Country: None (occurrence: None)
  Receive Date: 20100426
  Receipt Date: 20100215
  Transmission Date: 20101027
  Serious: Yes (Other)
  Sender: FDA-Public Use
  Company Number: DE-GENENTECH-300972

PATIENT

DRUGS (1)
  1. LUCENTIS [Suspect]
     Indication: DRUG USE FOR UNKNOWN INDICATION
     Route: 031

REACTIONS (2)
  - DETACHMENT OF RETINAL PIGMENT EPITHELIUM [None]
  - DISEASE RECURRENCE [None]
